FAERS Safety Report 13894127 (Version 1)
Quarter: 2017Q3

REPORT INFORMATION
  Report Type: Spontaneous
  Country: US (occurrence: US)
  Receive Date: 20170816
  Receipt Date: 20170816
  Transmission Date: 20171127
  Serious: No
  Sender: FDA-Public Use
  Company Number: None

PATIENT
  Age: 19 Year
  Sex: Male

DRUGS (3)
  1. LEUCOVORIN. [Concomitant]
     Active Substance: LEUCOVORIN
  2. CALCIUM [Concomitant]
     Active Substance: CALCIUM
  3. OTREXUP [Suspect]
     Active Substance: METHOTREXATE
     Indication: IRIDOCYCLITIS
     Route: 058
     Dates: start: 20150930, end: 20170602

REACTIONS (3)
  - Anger [None]
  - Suicidal ideation [None]
  - Depression [None]
